FAERS Safety Report 5621469-0 (Version None)
Quarter: 2008Q1

REPORT INFORMATION
  Report Type: 
  Country: None (occurrence: None)
  Receive Date: 20080129
  Receipt Date: 20080115
  Transmission Date: 20080703
  Serious: Yes (Hospitalization)
  Sender: FDA-Public Use
  Company Number: B0505204A

PATIENT
  Age: 35 Year
  Sex: Male

DRUGS (7)
  1. LAMOTRIGINE [Suspect]
  2. VALPROATE SODIUM [Suspect]
  3. PREGABALIN                (FORMULATION UNKNOWN) (PREGABALIN) [Suspect]
     Dosage: SEE DOSAGE TEXT
  4. TRIMIPRAMINE MALEATE [Concomitant]
  5. PROMETHAZINE [Concomitant]
  6. PANTOPRAZOLE [Concomitant]
  7. LORAZEPAM [Concomitant]

REACTIONS (6)
  - AGGRESSION [None]
  - CONVULSION [None]
  - DRUG INTERACTION [None]
  - DRUG LEVEL INCREASED [None]
  - VOMITING [None]
  - WEIGHT DECREASED [None]
